FAERS Safety Report 4604526-7 (Version None)
Quarter: 2005Q1

REPORT INFORMATION
  Report Type: 
  Country: None (occurrence: None)
  Receive Date: 20050310
  Receipt Date: 20050303
  Transmission Date: 20050727
  Serious: Yes (Hospitalization, Other)
  Sender: FDA-Public Use
  Company Number: FR-MERCK-0503FRA00020

PATIENT
  Age: 79 Year
  Sex: Female

DRUGS (6)
  1. COZAAR [Suspect]
     Indication: HYPERTENSION
     Route: 048
     Dates: start: 20041002, end: 20041030
  2. GLICLAZIDE [Suspect]
     Indication: DIABETES MELLITUS
     Route: 048
     Dates: end: 20041015
  3. FLUINDIONE [Concomitant]
     Indication: THROMBOSIS PROPHYLAXIS
     Route: 048
     Dates: start: 20041002, end: 20041011
  4. OMEPRAZOLE [Concomitant]
     Route: 048
     Dates: start: 20041011, end: 20041026
  5. NAFRONYL OXALATE [Concomitant]
     Indication: CEREBROVASCULAR INSUFFICIENCY
     Route: 048
     Dates: end: 20041011
  6. BROMAZEPAM [Concomitant]
     Indication: ANXIETY
     Route: 048
     Dates: end: 20041011

REACTIONS (3)
  - CYTOLYTIC HEPATITIS [None]
  - HEPATITIS [None]
  - INTERNATIONAL NORMALISED RATIO INCREASED [None]
